FAERS Safety Report 9173002 (Version 1)
Quarter: 2013Q1

REPORT INFORMATION
  Report Type: Spontaneous
  Country: JP (occurrence: JP)
  Receive Date: 20130320
  Receipt Date: 20130320
  Transmission Date: 20140127
  Serious: Yes (Hospitalization)
  Sender: FDA-Public Use
  Company Number: JP-BIOGENIDEC-2013BI024281

PATIENT
  Age: 65 Year
  Sex: Female

DRUGS (2)
  1. AVONEX [Suspect]
     Indication: RELAPSING-REMITTING MULTIPLE SCLEROSIS
     Route: 030
     Dates: start: 20081217
  2. LOXONIN [Concomitant]
     Indication: PROPHYLAXIS
     Route: 048
     Dates: start: 20090126

REACTIONS (1)
  - Lung neoplasm malignant [Recovered/Resolved]
